FAERS Safety Report 14109572 (Version 1)
Quarter: 2017Q4

REPORT INFORMATION
  Report Type: Report from Study
  Country: None (occurrence: US)
  Receive Date: 20171020
  Receipt Date: 20171020
  Transmission Date: 20180321
  Serious: Yes (Other)
  Sender: FDA-Public Use
  Company Number: US-ABBVIE-17K-163-1902603-00

PATIENT
  Age: 28 Year
  Sex: Female
  Weight: 69.01 kg

DRUGS (2)
  1. PNV [Concomitant]
     Indication: PRODUCT USED FOR UNKNOWN INDICATION
  2. HUMIRA [Suspect]
     Active Substance: ADALIMUMAB
     Indication: CROHN^S DISEASE
     Route: 058
     Dates: start: 201508, end: 2017

REACTIONS (5)
  - Normal newborn [Unknown]
  - Injection site urticaria [Not Recovered/Not Resolved]
  - Exposure during pregnancy [Unknown]
  - Injection site pain [Not Recovered/Not Resolved]
  - Placental disorder [Recovered/Resolved]

NARRATIVE: CASE EVENT DATE: 201611
